FAERS Safety Report 7571023-9 (Version None)
Quarter: 2011Q2

REPORT INFORMATION
  Report Type: 
  Country: None (occurrence: None)
  Receive Date: 20110624
  Receipt Date: 20110613
  Transmission Date: 20111010
  Serious: Yes (Other)
  Sender: FDA-Public Use
  Company Number: CN-ROCHE-781909

PATIENT
  Sex: Male

DRUGS (5)
  1. CAPECITABINE [Suspect]
     Route: 065
  2. GEFITINIB [Suspect]
     Route: 065
  3. CETUXIMAB [Suspect]
     Route: 065
  4. BEVACIZUMAB [Suspect]
     Route: 065
  5. OXALIPLATIN [Suspect]
     Route: 065

REACTIONS (6)
  - PARONYCHIA [None]
  - NEUROTOXICITY [None]
  - GASTROINTESTINAL DISORDER [None]
  - DERMATITIS ACNEIFORM [None]
  - BONE MARROW FAILURE [None]
  - PALMAR-PLANTAR ERYTHRODYSAESTHESIA SYNDROME [None]
